FAERS Safety Report 16346716 (Version 1)
Quarter: 2019Q2

REPORT INFORMATION
  Report Type: Spontaneous
  Country: FR (occurrence: FR)
  Receive Date: 20190523
  Receipt Date: 20190523
  Transmission Date: 20190711
  Serious: Yes (Life-Threatening)
  Sender: FDA-Public Use
  Company Number: FR-MYLANLABS-2019M1048728

PATIENT
  Age: 67 Year
  Sex: Female
  Weight: 93 kg

DRUGS (20)
  1. DEXAMETHASONE. [Suspect]
     Active Substance: DEXAMETHASONE
     Indication: GENERAL ANAESTHESIA
     Dosage: 4 MILLIGRAM, TOTAL
     Route: 042
     Dates: start: 20180925, end: 20180925
  2. SPIRIVA RESPIMAT [Concomitant]
     Active Substance: TIOTROPIUM BROMIDE
  3. BIPRETERAX                         /01421201/ [Concomitant]
     Active Substance: INDAPAMIDE\PERINDOPRIL ERBUMINE
  4. DOLIPRANE [Concomitant]
     Active Substance: ACETAMINOPHEN
  5. FENOFIBRATE MERCK [Concomitant]
  6. SUFENTANIL [Suspect]
     Active Substance: SUFENTANIL
     Indication: GENERAL ANAESTHESIA
     Dosage: 30 MICROGRAM, TOTAL
     Route: 042
     Dates: start: 20180925, end: 20180925
  7. STAGID [Concomitant]
     Active Substance: METFORMIN PAMOATE
  8. TRULICITY [Concomitant]
     Active Substance: DULAGLUTIDE
  9. DIOSMINE SANDOZ [Concomitant]
  10. LERCANIDIPINE BIOGARAN [Concomitant]
     Active Substance: LERCANIDIPINE HYDROCHLORIDE
  11. ESMERON [Suspect]
     Active Substance: ROCURONIUM BROMIDE
     Indication: GENERAL ANAESTHESIA
     Dosage: 70 MILLIGRAM, TOTAL
     Route: 042
     Dates: start: 20180925, end: 20180925
  12. SERETIDE [Concomitant]
     Active Substance: FLUTICASONE PROPIONATE\SALMETEROL XINAFOATE
  13. DESLORATADINE MYLAN [Concomitant]
     Active Substance: DESLORATADINE
  14. PROPOFOL. [Suspect]
     Active Substance: PROPOFOL
     Indication: GENERAL ANAESTHESIA
     Dosage: 200 MILLIGRAM, TOTAL
     Route: 042
     Dates: start: 20180925, end: 20180925
  15. CHOLECALCIFEROL SANDOZ [Concomitant]
     Active Substance: CHOLECALCIFEROL
  16. KETAMINE [Suspect]
     Active Substance: KETAMINE
     Indication: GENERAL ANAESTHESIA
     Dosage: 30 MILLIGRAM, TOTAL
     Route: 042
     Dates: start: 20180925, end: 20180925
  17. DROLEPTAN [Suspect]
     Active Substance: DROPERIDOL
     Indication: PROPHYLAXIS OF NAUSEA AND VOMITING
     Dosage: 1.25 MILLIGRAM, TOTAL
     Route: 042
     Dates: start: 20180925, end: 20180925
  18. VENTOLINE                          /00139501/ [Concomitant]
     Active Substance: ALBUTEROL
  19. OMEPRAZOLE TEVA                    /00661201/ [Concomitant]
     Active Substance: OMEPRAZOLE
  20. CELIPROLOL [Concomitant]
     Active Substance: CELIPROLOL

REACTIONS (1)
  - Anaphylactic shock [Recovered/Resolved]

NARRATIVE: CASE EVENT DATE: 20180925
